FAERS Safety Report 19140542 (Version 2)
Quarter: 2021Q3

REPORT INFORMATION
  Report Type: Spontaneous
  Country: US (occurrence: US)
  Receive Date: 20210415
  Receipt Date: 20210722
  Transmission Date: 20211014
  Serious: No
  Sender: FDA-Public Use
  Company Number: US-PFIZER INC-2020352472

PATIENT
  Age: 65 Year
  Sex: Female

DRUGS (3)
  1. XELJANZ [Suspect]
     Active Substance: TOFACITINIB CITRATE
     Dosage: 5 MG, DAILY
     Route: 048
     Dates: end: 20210215
  2. XELJANZ [Suspect]
     Active Substance: TOFACITINIB CITRATE
     Indication: RHEUMATOID ARTHRITIS
     Dosage: 5 MG, DAILY
     Route: 048
     Dates: start: 20200803, end: 20201103
  3. XELJANZ [Suspect]
     Active Substance: TOFACITINIB CITRATE
     Dosage: 5 MG, DAILY
     Route: 048
     Dates: start: 20200803

REACTIONS (4)
  - Memory impairment [Unknown]
  - Depression [Unknown]
  - Product dose omission in error [Unknown]
  - Intentional product misuse [Unknown]

NARRATIVE: CASE EVENT DATE: 20200803
